FAERS Safety Report 15580990 (Version 1)
Quarter: 2018Q4

REPORT INFORMATION
  Report Type: Report from Study
  Country: US (occurrence: US)
  Receive Date: 20181102
  Receipt Date: 20181102
  Transmission Date: 20190205
  Serious: Yes (Other)
  Sender: FDA-Public Use
  Company Number: PHEH2018US045889

PATIENT
  Sex: Female

DRUGS (1)
  1. COSENTYX [Suspect]
     Active Substance: SECUKINUMAB
     Indication: PSORIATIC ARTHROPATHY
     Dosage: 300 MG, QW
     Route: 058
     Dates: start: 20181011

REACTIONS (7)
  - Feeling hot [Unknown]
  - Loss of consciousness [Unknown]
  - Muscle strain [Unknown]
  - Tremor [Unknown]
  - Rash generalised [Unknown]
  - Rash [Unknown]
  - Pruritus [Unknown]
